FAERS Safety Report 14020563 (Version 3)
Quarter: 2017Q4

REPORT INFORMATION
  Report Type: Report from Study
  Country: CN (occurrence: CN)
  Receive Date: 20170928
  Receipt Date: 20171101
  Transmission Date: 20180321
  Serious: Yes (Hospitalization, Other)
  Sender: FDA-Public Use
  Company Number: CN-BAYER-2017-176806

PATIENT
  Age: 58 Year
  Sex: Male

DRUGS (1)
  1. REGORAFENIB [Suspect]
     Active Substance: REGORAFENIB
     Indication: COLORECTAL CANCER
     Dosage: 160 MG, QD
     Route: 048
     Dates: start: 20170901, end: 20170913

REACTIONS (24)
  - Weight decreased [None]
  - Dermatitis allergic [None]
  - Dizziness [None]
  - Hiccups [None]
  - Alanine aminotransferase increased [None]
  - Blood albumin decreased [None]
  - Skin exfoliation [None]
  - Abdominal discomfort [None]
  - Vomiting [None]
  - Tremor [None]
  - Oropharyngeal pain [None]
  - Lethargy [None]
  - Gait inability [None]
  - Gait inability [None]
  - Pruritus allergic [None]
  - Erythema [None]
  - Pyrexia [None]
  - Discomfort [None]
  - Regurgitation [None]
  - Peripheral swelling [None]
  - Constipation [None]
  - Asthenia [None]
  - Dysphonia [None]
  - Aspartate aminotransferase increased [None]

NARRATIVE: CASE EVENT DATE: 201709
